FAERS Safety Report 6719387-X (Version None)
Quarter: 2010Q2

REPORT INFORMATION
  Report Type: 
  Country: None (occurrence: None)
  Receive Date: 20100511
  Receipt Date: 20100427
  Transmission Date: 20101027
  Serious: Yes (Disabling, Other)
  Sender: FDA-Public Use
  Company Number: FI-BRISTOL-MYERS SQUIBB COMPANY-15098643

PATIENT
  Age: 66 Year
  Sex: Male

DRUGS (7)
  1. CARBIDOPA + LEVODOPA [Suspect]
     Indication: PARKINSON'S DISEASE
     Route: 048
  2. ALENDRONATE SODIUM [Interacting]
     Indication: OSTEOPENIA
     Dosage: TABS
     Route: 048
     Dates: start: 20100220, end: 20100329
  3. STALEVO 100 [Interacting]
     Indication: PARKINSON'S DISEASE
     Route: 048
  4. SIFROL [Interacting]
     Indication: PARKINSON'S DISEASE
     Route: 048
  5. ELDEPRYL [Interacting]
     Indication: PARKINSON'S DISEASE
     Route: 048
  6. IDEOS [Concomitant]
  7. IMOVANE [Concomitant]

REACTIONS (2)
  - DRUG INTERACTION [None]
  - PARKINSON'S DISEASE [None]
